FAERS Safety Report 10096510 (Version 3)
Quarter: 2015Q3

REPORT INFORMATION
  Report Type: Spontaneous
  Country: US (occurrence: US)
  Receive Date: 20140422
  Receipt Date: 20150813
  Transmission Date: 20151125
  Serious: No
  Sender: FDA-Public Use
  Company Number: US-GILEAD-2012-0063952

PATIENT
  Age: 63 Year
  Sex: Male

DRUGS (5)
  1. LETAIRIS [Suspect]
     Active Substance: AMBRISENTAN
     Indication: CHRONIC OBSTRUCTIVE PULMONARY DISEASE
  2. LETAIRIS [Suspect]
     Active Substance: AMBRISENTAN
     Indication: PULMONARY HYPERTENSION
     Dosage: 10 MG, QD
     Route: 048
     Dates: start: 20071025
  3. LETAIRIS [Suspect]
     Active Substance: AMBRISENTAN
     Indication: IDIOPATHIC PULMONARY FIBROSIS
  4. TYVASO [Suspect]
     Active Substance: TREPROSTINIL
     Dates: start: 20120925
  5. ADCIRCA [Concomitant]
     Active Substance: TADALAFIL
     Dosage: 40 MG, QD
     Dates: start: 20091203

REACTIONS (2)
  - Cough [Unknown]
  - Headache [Unknown]

NARRATIVE: CASE EVENT DATE: 201210
